FAERS Safety Report 19620962 (Version 1)
Quarter: 2021Q3

REPORT INFORMATION
  Report Type: Report from Study
  Country: US (occurrence: US)
  Receive Date: 20210728
  Receipt Date: 20210728
  Transmission Date: 20211014
  Serious: Yes (Hospitalization)
  Sender: FDA-Public Use
  Company Number: US-ALNYLAM PHARMACEUTICALS, INC.-ALN-2021-001748

PATIENT

DRUGS (1)
  1. GIVLAARI [Suspect]
     Active Substance: GIVOSIRAN SODIUM
     Indication: PRODUCT USED FOR UNKNOWN INDICATION
     Dosage: 2.5 MILLIGRAM/KILOGRAM (VIAL: 189 MG/ML), MONTHLY
     Route: 058
     Dates: start: 20201229

REACTIONS (2)
  - Ill-defined disorder [Unknown]
  - Exposure to tobacco [Unknown]

NARRATIVE: CASE EVENT DATE: 20210721
